FAERS Safety Report 25884365 (Version 1)
Quarter: 2025Q4

REPORT INFORMATION
  Report Type: Spontaneous
  Country: JP (occurrence: JP)
  Receive Date: 20251006
  Receipt Date: 20251006
  Transmission Date: 20260117
  Serious: Yes (Other)
  Sender: MYLAN
  Company Number: JP-MYLANLABS-2025M1079758

PATIENT
  Age: 66 Year
  Sex: Male

DRUGS (4)
  1. EPIPEN [Suspect]
     Active Substance: EPINEPHRINE
     Indication: Product used for unknown indication
     Dosage: UNK
     Dates: start: 20250918, end: 20250918
  2. EPIPEN [Suspect]
     Active Substance: EPINEPHRINE
     Dosage: UNK
     Route: 061
     Dates: start: 20250918, end: 20250918
  3. EPIPEN [Suspect]
     Active Substance: EPINEPHRINE
     Dosage: UNK
     Route: 061
     Dates: start: 20250918, end: 20250918
  4. EPIPEN [Suspect]
     Active Substance: EPINEPHRINE
     Dosage: UNK
     Dates: start: 20250918, end: 20250918

REACTIONS (7)
  - Injection site swelling [Recovering/Resolving]
  - Injection site haemorrhage [Unknown]
  - Hypoaesthesia [Unknown]
  - Injection site discolouration [Unknown]
  - Injection site coldness [Recovering/Resolving]
  - Accidental exposure to product [Unknown]
  - Expired product administered [Unknown]

NARRATIVE: CASE EVENT DATE: 20250918
